FAERS Safety Report 10652948 (Version 3)
Quarter: 2015Q2

REPORT INFORMATION
  Report Type: Spontaneous
  Country: US (occurrence: US)
  Receive Date: 20141215
  Receipt Date: 20150414
  Transmission Date: 20150821
  Serious: No
  Sender: FDA-Public Use
  Company Number: US-PFIZER INC-2014340139

PATIENT
  Age: 64 Year
  Sex: Male

DRUGS (6)
  1. HCT [Concomitant]
     Active Substance: HYDROCHLOROTHIAZIDE
     Dosage: UNK
  2. SOMAVERT [Suspect]
     Active Substance: PEGVISOMANT
     Indication: NEUROENDOCRINE TUMOUR
     Dosage: 10 MG, DAILY
     Dates: start: 2014
  3. SOMAVERT [Suspect]
     Active Substance: PEGVISOMANT
     Dosage: 10 MG, 3X WEEK
  4. CABERGOLINE. [Concomitant]
     Active Substance: CABERGOLINE
     Dosage: UNK
     Dates: start: 201310
  5. LISINOPRIL. [Concomitant]
     Active Substance: LISINOPRIL
     Dosage: UNK
  6. OCTREOTIDE [Concomitant]
     Active Substance: OCTREOTIDE
     Dosage: UNK
     Dates: start: 201310

REACTIONS (4)
  - Abdominal pain upper [Recovered/Resolved]
  - Back pain [Recovered/Resolved]
  - Chest pain [Recovered/Resolved]
  - Product use issue [Unknown]
